FAERS Safety Report 16003380 (Version 2)
Quarter: 2019Q3

REPORT INFORMATION
  Report Type: Report from Study
  Country: None (occurrence: CA)
  Receive Date: 20190226
  Receipt Date: 20190702
  Transmission Date: 20191004
  Serious: Yes (Hospitalization)
  Sender: FDA-Public Use
  Company Number: CA-ABBVIE-19K-028-2673676-00

PATIENT
  Age: 52 Year
  Sex: Female

DRUGS (2)
  1. HUMIRA [Suspect]
     Active Substance: ADALIMUMAB
     Route: 058
     Dates: start: 2019
  2. HUMIRA [Suspect]
     Active Substance: ADALIMUMAB
     Indication: PSORIATIC ARTHROPATHY
     Route: 058
     Dates: start: 20160513, end: 20190101

REACTIONS (10)
  - Connective tissue disorder [Unknown]
  - Anaphylactic reaction [Unknown]
  - Mastocytosis [Unknown]
  - Autoimmune disorder [Unknown]
  - Neutrophilic dermatosis [Unknown]
  - Activation syndrome [Unknown]
  - Dental caries [Unknown]
  - Tooth infection [Unknown]
  - Still^s disease [Unknown]
  - Rash papular [Unknown]

NARRATIVE: CASE EVENT DATE: 2019
